FAERS Safety Report 17668630 (Version 4)
Quarter: 2020Q3

REPORT INFORMATION
  Report Type: Spontaneous
  Country: GB (occurrence: US)
  Receive Date: 20200415
  Receipt Date: 20200710
  Transmission Date: 20201102
  Serious: Yes (Death, Other)
  Sender: FDA-Public Use
  Company Number: GB-REGENERON PHARMACEUTICALS, INC.-2020-28951

PATIENT

DRUGS (1)
  1. EYLEA [Suspect]
     Active Substance: AFLIBERCEPT
     Indication: MACULAR DEGENERATION
     Dosage: MONTHLY EYE INJECTIONS
     Route: 031

REACTIONS (11)
  - Dyspnoea [Unknown]
  - Influenza like illness [Unknown]
  - Fatigue [Unknown]
  - Viral infection [Unknown]
  - Death [Fatal]
  - Anxiety [Unknown]
  - Pulmonary embolism [Unknown]
  - Circulatory collapse [Unknown]
  - Panic attack [Unknown]
  - Cough [Unknown]
  - Stress [Unknown]

NARRATIVE: CASE EVENT DATE: 2019
